FAERS Safety Report 9934881 (Version 1)
Quarter: 2014Q1

REPORT INFORMATION
  Report Type: Spontaneous
  Country: US (occurrence: US)
  Receive Date: 20140228
  Receipt Date: 20140228
  Transmission Date: 20141002
  Serious: No
  Sender: FDA-Public Use
  Company Number: US-ASTRAZENECA-2013SE76263

PATIENT
  Age: 76 Year
  Sex: Male

DRUGS (3)
  1. METOPROLOL SUCCINATE [Suspect]
     Route: 048
  2. ASPIRIN [Concomitant]
     Dosage: UNK
  3. SIMVASTATIN [Concomitant]
     Indication: BLOOD CHOLESTEROL
     Dosage: UNK

REACTIONS (4)
  - Therapeutic response unexpected with drug substitution [Unknown]
  - Therapeutic response decreased [Unknown]
  - Nausea [Unknown]
  - Heart rate irregular [Unknown]
